FAERS Safety Report 6299531-1 (Version None)
Quarter: 2009Q3

REPORT INFORMATION
  Report Type: 
  Country: None (occurrence: None)
  Receive Date: 20090803
  Receipt Date: 20090715
  Transmission Date: 20100115
  Serious: Yes (Hospitalization)
  Sender: FDA-Public Use
  Company Number: 2009AL002552

PATIENT
  Age: 48 Year
  Sex: Male

DRUGS (12)
  1. DIGOXIN [Suspect]
     Dosage: 0.125MG, DAILY, PO
     Route: 048
     Dates: start: 20071212
  2. CARDIZEM [Concomitant]
  3. LOVENOX [Concomitant]
  4. SODIUM CHLORIDE [Concomitant]
  5. CORDARONE [Concomitant]
  6. PROTONIX [Concomitant]
  7. COUMADIN [Concomitant]
  8. TYLENOL (CAPLET) [Concomitant]
  9. ASPIRIN [Concomitant]
  10. TOPROL-XL [Concomitant]
  11. LISINOPRIL [Concomitant]
  12. LIPITOR [Concomitant]

REACTIONS (13)
  - ATRIAL FLUTTER [None]
  - CARDIOMYOPATHY [None]
  - CHEST DISCOMFORT [None]
  - DYSPNOEA [None]
  - ECONOMIC PROBLEM [None]
  - MULTIPLE INJURIES [None]
  - NAUSEA [None]
  - SLEEP APNOEA SYNDROME [None]
  - SNORING [None]
  - SOMNOLENCE [None]
  - SURGERY [None]
  - TACHYPNOEA [None]
  - VOMITING [None]
